FAERS Safety Report 23241801 (Version 1)
Quarter: 2023Q4

REPORT INFORMATION
  Report Type: Spontaneous
  Country: JP (occurrence: JP)
  Receive Date: 20231129
  Receipt Date: 20231129
  Transmission Date: 20240110
  Serious: Yes (Other)
  Sender: FDA-Public Use
  Company Number: JP-ASTELLAS-2023JP012909

PATIENT
  Age: 71 Year
  Sex: Female

DRUGS (4)
  1. ZOLPIDEM TARTRATE [Suspect]
     Active Substance: ZOLPIDEM TARTRATE
     Indication: Insomnia
     Dosage: 5 MG
     Route: 048
  2. ZOLPIDEM TARTRATE [Suspect]
     Active Substance: ZOLPIDEM TARTRATE
     Dosage: 10 MG
     Route: 048
  3. ZOLPIDEM TARTRATE [Suspect]
     Active Substance: ZOLPIDEM TARTRATE
     Dosage: UNK (3/4 AMOUNT)
     Route: 048
  4. ZOLPIDEM TARTRATE [Suspect]
     Active Substance: ZOLPIDEM TARTRATE
     Dosage: 10 MG
     Route: 048

REACTIONS (31)
  - Cataract [Unknown]
  - Photophobia [Unknown]
  - Dry eye [Unknown]
  - Eye pain [Unknown]
  - Headache [Unknown]
  - Herpes zoster [Unknown]
  - Post herpetic neuralgia [Unknown]
  - Visual acuity reduced [Unknown]
  - Asthenopia [Unknown]
  - Menopausal symptoms [Unknown]
  - Insomnia [Unknown]
  - Irritability [Unknown]
  - Physical deconditioning [Unknown]
  - Physical deconditioning [Unknown]
  - Insomnia [Unknown]
  - Immune system disorder [Unknown]
  - Immune system disorder [Unknown]
  - Feeling abnormal [Unknown]
  - Insomnia [Unknown]
  - Malaise [Unknown]
  - Fatigue [Unknown]
  - Back pain [Unknown]
  - Skin disorder [Unknown]
  - Alopecia [Unknown]
  - Muscular weakness [Unknown]
  - Hypoaesthesia [Unknown]
  - Foaming at mouth [Unknown]
  - Sleep disorder [Unknown]
  - Somnolence [Unknown]
  - Intentional product misuse [Unknown]
  - Therapeutic product effect incomplete [Unknown]
